FAERS Safety Report 9266816 (Version 1)
Quarter: 2013Q2

REPORT INFORMATION
  Report Type: Spontaneous
  Country: US (occurrence: US)
  Receive Date: 20130502
  Receipt Date: 20130502
  Transmission Date: 20140414
  Serious: Yes (Hospitalization)
  Sender: FDA-Public Use
  Company Number: US-BAYER-2013-053752

PATIENT
  Age: 26 Year
  Sex: Female
  Weight: 61.5 kg

DRUGS (4)
  1. YAZ [Suspect]
     Dosage: UNK
     Dates: start: 20120531, end: 20120919
  2. PERCOCET [Concomitant]
  3. PROTON PUMP INHIBITORS [Concomitant]
  4. NORCO [Concomitant]
     Indication: PAIN

REACTIONS (4)
  - Pulmonary embolism [None]
  - Pulmonary infarction [None]
  - Musculoskeletal pain [None]
  - Pleuritic pain [None]
